FAERS Safety Report 19676146 (Version 1)
Quarter: 2021Q3

REPORT INFORMATION
  Report Type: Spontaneous
  Country: BE (occurrence: BE)
  Receive Date: 20210809
  Receipt Date: 20210809
  Transmission Date: 20211014
  Serious: Yes (Other)
  Sender: FDA-Public Use
  Company Number: BE-TEVA-2021-BE-1939957

PATIENT
  Sex: Female

DRUGS (3)
  1. DICLOFENAC [Suspect]
     Active Substance: DICLOFENAC
     Dosage: 3 DF
     Route: 065
  2. PANTOMED [Concomitant]
  3. DAFALGAN FORTE [Concomitant]
     Active Substance: ACETAMINOPHEN
     Dosage: 4 DF

REACTIONS (4)
  - Faeces discoloured [Unknown]
  - Anaemia [Unknown]
  - Gastric haemorrhage [Unknown]
  - Gastric ulcer [Unknown]
